FAERS Safety Report 6931483-0 (Version None)
Quarter: 2010Q3

REPORT INFORMATION
  Report Type: 
  Country: None (occurrence: None)
  Receive Date: 20100819
  Receipt Date: 20100811
  Transmission Date: 20110219
  Serious: Yes (Hospitalization, Other)
  Sender: FDA-Public Use
  Company Number: US-ELI_LILLY_AND_COMPANY-US201008003149

PATIENT
  Sex: Female
  Weight: 94.331 kg

DRUGS (4)
  1. BYETTA [Suspect]
     Indication: TYPE 2 DIABETES MELLITUS
     Dosage: 5 UG, 2/D
     Route: 058
  2. BYETTA [Suspect]
     Dosage: 10 UG, 2/D
     Route: 058
  3. GLIMEPIRIDE [Concomitant]
     Indication: TYPE 2 DIABETES MELLITUS
     Dosage: 1 D/F, 2/D
     Route: 048
  4. COUMADIN [Concomitant]
     Indication: ANTIPLATELET THERAPY

REACTIONS (11)
  - AORTIC VALVE REPLACEMENT [None]
  - BLINDNESS [None]
  - BLOOD GLUCOSE INCREASED [None]
  - ENDOCARDITIS [None]
  - INCORRECT DOSE ADMINISTERED [None]
  - MITRAL VALVE REPLACEMENT [None]
  - MYOCARDITIS [None]
  - PERICARDITIS [None]
  - RETINAL ARTERY OCCLUSION [None]
  - VISUAL ACUITY REDUCED [None]
  - WOUND INFECTION STAPHYLOCOCCAL [None]
